FAERS Safety Report 18919159 (Version 1)
Quarter: 2021Q1

REPORT INFORMATION
  Report Type: Spontaneous
  Country: NL (occurrence: NL)
  Receive Date: 20210220
  Receipt Date: 20210220
  Transmission Date: 20210420
  Serious: Yes (Death, Life-Threatening, Hospitalization, Other)
  Sender: FDA-Public Use
  Company Number: NL-AMGEN-NLDSP2021023881

PATIENT

DRUGS (2)
  1. MELPHALAN. [Suspect]
     Active Substance: MELPHALAN
     Indication: METASTATIC OCULAR MELANOMA
     Dosage: 3 MILLIGRAM/KILOGRAM
  2. PEGFILGRASTIM [Suspect]
     Active Substance: PEGFILGRASTIM
     Indication: PRODUCT USED FOR UNKNOWN INDICATION
     Dosage: 6 MILLIGRAM
     Route: 058

REACTIONS (11)
  - Adverse event [Unknown]
  - Death [Fatal]
  - Leukopenia [Unknown]
  - Lymphopenia [Unknown]
  - Disease progression [Unknown]
  - General physical health deterioration [Recovered/Resolved]
  - Sepsis [Recovered/Resolved]
  - Pharyngitis bacterial [Recovered/Resolved]
  - Myocardial ischaemia [Recovered/Resolved]
  - Metastases to liver [Unknown]
  - Pharyngeal abscess [Recovered/Resolved]
